FAERS Safety Report 4571713-6 (Version None)
Quarter: 2005Q1

REPORT INFORMATION
  Report Type: 
  Country: None (occurrence: None)
  Receive Date: 20050207
  Receipt Date: 20050125
  Transmission Date: 20050727
  Serious: Yes (Hospitalization)
  Sender: FDA-Public Use
  Company Number: IT-ROCHE-393783

PATIENT
  Age: 61 Year
  Sex: Female

DRUGS (2)
  1. PEGASYS [Suspect]
     Indication: HEPATITIS C
     Dosage: REPORTED AS 180UG QW.
     Route: 058
     Dates: start: 20031104, end: 20041011
  2. PEGASYS [Suspect]
     Route: 058

REACTIONS (5)
  - ECCHYMOSIS [None]
  - EPISTAXIS [None]
  - LEUKOPENIA [None]
  - PETECHIAE [None]
  - THROMBOCYTOPENIA [None]
